FAERS Safety Report 20747731 (Version 1)
Quarter: 2022Q2

REPORT INFORMATION
  Report Type: Spontaneous
  Country: US (occurrence: US)
  Receive Date: 20220425
  Receipt Date: 20220425
  Transmission Date: 20220721
  Serious: No
  Sender: FDA-Public Use
  Company Number: US-SA-SAC20220420001647

PATIENT
  Sex: Female

DRUGS (1)
  1. AUBAGIO [Suspect]
     Active Substance: TERIFLUNOMIDE
     Indication: Multiple sclerosis
     Dosage: 14 MG, FREQUENCY: ONCE ONLY
     Route: 048
     Dates: start: 20210623

REACTIONS (3)
  - Visual impairment [Unknown]
  - Memory impairment [Unknown]
  - Product dose omission in error [Unknown]
